FAERS Safety Report 9484979 (Version 1)
Quarter: 2013Q3

REPORT INFORMATION
  Report Type: Spontaneous
  Country: US (occurrence: US)
  Receive Date: 20130828
  Receipt Date: 20130828
  Transmission Date: 20140515
  Serious: No
  Sender: FDA-Public Use
  Company Number: US-ABBOTT-13P-163-1130111-00

PATIENT
  Age: 51 Year
  Sex: Male
  Weight: 97.61 kg

DRUGS (8)
  1. ANDROGEL 1.62% [Suspect]
     Indication: BLOOD TESTOSTERONE DECREASED
     Dosage: TWO PUMPS PER DAY
     Route: 061
  2. BUSTAR [Concomitant]
     Indication: PRODUCT USED FOR UNKNOWN INDICATION
  3. HYZAAR [Concomitant]
     Indication: PRODUCT USED FOR UNKNOWN INDICATION
  4. CENTRUM SILVER [Concomitant]
     Indication: PRODUCT USED FOR UNKNOWN INDICATION
  5. VITAMIN D [Concomitant]
     Indication: PRODUCT USED FOR UNKNOWN INDICATION
  6. LORTAB [Concomitant]
     Indication: BACK PAIN
  7. LORTAB [Concomitant]
     Indication: NECK PAIN
  8. LORTAB [Concomitant]
     Indication: MUSCULOSKELETAL PAIN

REACTIONS (4)
  - Blister [Not Recovered/Not Resolved]
  - Eczema [Not Recovered/Not Resolved]
  - Pleurisy [Recovered/Resolved]
  - Sinusitis [Not Recovered/Not Resolved]
